FAERS Safety Report 18234727 (Version 2)
Quarter: 2020Q3

REPORT INFORMATION
  Report Type: Spontaneous
  Country: GB (occurrence: GB)
  Receive Date: 20200904
  Receipt Date: 20200914
  Transmission Date: 20201103
  Serious: Yes (Other)
  Sender: FDA-Public Use
  Company Number: GB-BAUSCH-BL-2020-025319

PATIENT
  Sex: Female
  Weight: 54 kg

DRUGS (1)
  1. PLENVU [Suspect]
     Active Substance: ASCORBIC ACID\POLYETHYLENE GLYCOL 3350\POTASSIUM CHLORIDE\SODIUM ASCORBATE\SODIUM CHLORIDE\SODIUM SULFATE
     Indication: BOWEL PREPARATION
     Dosage: AS DIRECTED
     Route: 065
     Dates: start: 20200817

REACTIONS (9)
  - Presyncope [Unknown]
  - Incorrect dose administered [Unknown]
  - Dysphonia [Unknown]
  - Respiration abnormal [Unknown]
  - Oropharyngeal pain [Unknown]
  - Product taste abnormal [Unknown]
  - Dry throat [Unknown]
  - Feeling cold [Unknown]
  - Product use complaint [Unknown]
